FAERS Safety Report 19201725 (Version 3)
Quarter: 2021Q2

REPORT INFORMATION
  Report Type: Spontaneous
  Country: US (occurrence: US)
  Receive Date: 20210430
  Receipt Date: 20210512
  Transmission Date: 20210717
  Serious: No
  Sender: FDA-Public Use
  Company Number: US-UNITED THERAPEUTICS-UNT-2021-006239

PATIENT
  Age: 76 Year
  Sex: Female
  Weight: 56.69 kg

DRUGS (5)
  1. TYVASO [Suspect]
     Active Substance: TREPROSTINIL
     Dosage: 18?54 ?G, QID
  2. OPSUMIT [Suspect]
     Active Substance: MACITENTAN
     Indication: PULMONARY ARTERIAL HYPERTENSION
     Dosage: 10 MG, QD
     Route: 048
  3. TYVASO [Suspect]
     Active Substance: TREPROSTINIL
     Indication: PULMONARY ARTERIAL HYPERTENSION
     Dosage: UNK
     Dates: start: 20210322
  4. TYVASO [Suspect]
     Active Substance: TREPROSTINIL
     Dosage: UNK
  5. SILDENAFIL CITRATE. [Concomitant]
     Active Substance: SILDENAFIL CITRATE
     Indication: PRODUCT USED FOR UNKNOWN INDICATION
     Dosage: UNK
     Route: 065

REACTIONS (7)
  - Fatigue [Not Recovered/Not Resolved]
  - Iron deficiency anaemia [Unknown]
  - Dry throat [Unknown]
  - Cough [Unknown]
  - Dry mouth [Unknown]
  - Weight increased [Unknown]
  - Oropharyngeal pain [Unknown]

NARRATIVE: CASE EVENT DATE: 202104
